FAERS Safety Report 5745084-3 (Version None)
Quarter: 2008Q2

REPORT INFORMATION
  Report Type: 
  Country: None (occurrence: None)
  Receive Date: 20080521
  Receipt Date: 20080513
  Transmission Date: 20081010
  Serious: Yes (Death)
  Sender: FDA-Public Use
  Company Number: JP-WYE-H04145608

PATIENT

DRUGS (1)
  1. AMIODARONE HCL [Suspect]
     Dosage: DOSE UNKNOWN
     Route: 042

REACTIONS (1)
  - HEPATITIS FULMINANT [None]
